FAERS Safety Report 5384198-7 (Version None)
Quarter: 2007Q3

REPORT INFORMATION
  Report Type: 
  Country: None (occurrence: None)
  Receive Date: 20070711
  Receipt Date: 20070704
  Transmission Date: 20080115
  Serious: Yes (Hospitalization)
  Sender: FDA-Public Use
  Company Number: B0474289A

PATIENT
  Age: 44 Year
  Sex: Female
  Weight: 169 kg

DRUGS (2)
  1. LAPATINIB [Suspect]
     Dosage: 1250MGM2 PER DAY
     Route: 048
     Dates: start: 20070124
  2. CAPECITABINE [Suspect]
     Dosage: 3000MGM2 PER DAY
     Route: 048
     Dates: start: 20070124

REACTIONS (3)
  - HYPERBILIRUBINAEMIA [None]
  - ILL-DEFINED DISORDER [None]
  - THROMBOCYTOPENIA [None]
